FAERS Safety Report 13045916 (Version 2)
Quarter: 2016Q4

REPORT INFORMATION
  Report Type: Spontaneous
  Country: US (occurrence: US)
  Receive Date: 20161220
  Receipt Date: 20161229
  Transmission Date: 20170207
  Serious: Yes (Death, Hospitalization)
  Sender: FDA-Public Use
  Company Number: US-APOTEX-2016AP015905

PATIENT
  Age: 86 Day
  Sex: Male

DRUGS (1)
  1. ONDANSETRON HYDROCHLORIDE. [Suspect]
     Active Substance: ONDANSETRON HYDROCHLORIDE
     Indication: GASTROENTERITIS
     Dosage: 0.5 MG, UNK
     Route: 048

REACTIONS (4)
  - Supraventricular tachycardia [Fatal]
  - Atelectasis [Fatal]
  - Pulmonary oedema [Fatal]
  - Cardiac arrest [Fatal]
